FAERS Safety Report 20215578 (Version 2)
Quarter: 2021Q4

REPORT INFORMATION
  Report Type: Report from Study
  Country: US (occurrence: US)
  Receive Date: 20211222
  Receipt Date: 20211224
  Transmission Date: 20220303
  Serious: Yes (Death)
  Sender: FDA-Public Use
  Company Number: US-BAUSCH-BL-2020-008599

PATIENT
  Age: 75 Year
  Sex: Female

DRUGS (1)
  1. XIFAXAN [Suspect]
     Active Substance: RIFAXIMIN
     Indication: Liver disorder
     Dosage: BY MOUTH
     Route: 048
     Dates: end: 20200315

REACTIONS (2)
  - Liver disorder [Fatal]
  - Therapy interrupted [Unknown]

NARRATIVE: CASE EVENT DATE: 20200315
